FAERS Safety Report 15279765 (Version 1)
Quarter: 2018Q3

REPORT INFORMATION
  Report Type: Spontaneous
  Country: US (occurrence: US)
  Receive Date: 20180730
  Receipt Date: 20180730
  Transmission Date: 20181010
  Serious: Yes (Disabling, Other)
  Sender: FDA-Public Use
  Company Number: None

PATIENT
  Age: 52 Year
  Sex: Female
  Weight: 78.75 kg

DRUGS (2)
  1. PANTOPRAZOLE SOD DR 40 MG TAB [Suspect]
     Active Substance: PANTOPRAZOLE SODIUM
     Indication: GASTROOESOPHAGEAL REFLUX DISEASE
     Dosage: ?          QUANTITY:1 CAPSULE(S);?
     Route: 048
     Dates: start: 20110701, end: 20180730
  2. IRON INFUSIONS [Concomitant]
     Active Substance: IRON

REACTIONS (10)
  - Anaemia [None]
  - Dizziness [None]
  - Heart rate increased [None]
  - Arteriovenous malformation [None]
  - Impaired work ability [None]
  - Urine output decreased [None]
  - Gastritis [None]
  - Hyperhidrosis [None]
  - Anxiety [None]
  - Asthenia [None]

NARRATIVE: CASE EVENT DATE: 20170106
